FAERS Safety Report 14958146 (Version 1)
Quarter: 2018Q2

REPORT INFORMATION
  Report Type: Spontaneous
  Country: CN (occurrence: CN)
  Receive Date: 20180531
  Receipt Date: 20180531
  Transmission Date: 20180711
  Serious: Yes (Hospitalization)
  Sender: FDA-Public Use
  Company Number: CN-MYLANLABS-2018M1035493

PATIENT
  Age: 45 Year
  Sex: Female

DRUGS (1)
  1. HEPARIN [Suspect]
     Active Substance: HEPARIN SODIUM
     Indication: PRODUCT USED FOR UNKNOWN INDICATION
     Dosage: 0.5MG/KG AT 5MG/HR
     Route: 065

REACTIONS (3)
  - Spontaneous haematoma [Recovered/Resolved]
  - Perirenal haematoma [Recovered/Resolved]
  - Ascites [Recovered/Resolved]
